FAERS Safety Report 11827946 (Version 1)
Quarter: 2015Q4

REPORT INFORMATION
  Report Type: Spontaneous
  Country: US (occurrence: US)
  Receive Date: 20151211
  Receipt Date: 20151211
  Transmission Date: 20160305
  Serious: Yes (Other)
  Sender: FDA-Public Use
  Company Number: US-SA-2015SA203687

PATIENT
  Age: 62 Year
  Sex: Male

DRUGS (3)
  1. SOLOSTAR [Concomitant]
     Active Substance: DEVICE
     Indication: TYPE 2 DIABETES MELLITUS
  2. LANTUS SOLOSTAR [Suspect]
     Active Substance: INSULIN GLARGINE
     Indication: TYPE 2 DIABETES MELLITUS
     Dosage: DOSE:35 UNIT(S)
     Route: 065
     Dates: end: 2015
  3. GLUCOPHAGE [Concomitant]
     Active Substance: METFORMIN HYDROCHLORIDE

REACTIONS (11)
  - Myocardial infarction [Unknown]
  - Cardiac murmur [Unknown]
  - Hypertension [Unknown]
  - Blood glucose increased [Unknown]
  - Hypotension [Unknown]
  - Condition aggravated [Unknown]
  - Fall [Unknown]
  - Concussion [Unknown]
  - Dizziness [Unknown]
  - Visual acuity reduced [Unknown]
  - Head injury [Unknown]

NARRATIVE: CASE EVENT DATE: 2011
